FAERS Safety Report 14417370 (Version 1)
Quarter: 2018Q1

REPORT INFORMATION
  Report Type: Spontaneous
  Country: US (occurrence: US)
  Receive Date: 20180122
  Receipt Date: 20180122
  Transmission Date: 20180509
  Serious: No
  Sender: FDA-Public Use
  Company Number: US-ALLERGAN-1766641US

PATIENT
  Age: 73 Year
  Sex: Male

DRUGS (5)
  1. PRED MILD [Suspect]
     Active Substance: PREDNISOLONE ACETATE
     Dosage: 1 GTT, BID
     Route: 047
     Dates: start: 20171113
  2. PRED MILD [Suspect]
     Active Substance: PREDNISOLONE ACETATE
     Indication: PRODUCT USED FOR UNKNOWN INDICATION
     Dosage: 1 GTT, QPM
     Route: 047
     Dates: start: 20171110
  3. MULTIVITAMIN                       /00097801/ [Concomitant]
     Active Substance: VITAMINS
     Indication: PRODUCT USED FOR UNKNOWN INDICATION
     Dosage: UNK, QD
  4. PRED MILD [Suspect]
     Active Substance: PREDNISOLONE ACETATE
     Dosage: 1 GTT, BID
     Route: 047
     Dates: start: 20171111
  5. PRED MILD [Suspect]
     Active Substance: PREDNISOLONE ACETATE
     Dosage: 1 GTT, QD
     Route: 047
     Dates: start: 20171112

REACTIONS (6)
  - Intentional product misuse [Unknown]
  - Vision blurred [Not Recovered/Not Resolved]
  - Tension headache [Recovered/Resolved]
  - Hyperhidrosis [Recovered/Resolved]
  - Headache [Recovered/Resolved]
  - Eye pain [Recovering/Resolving]

NARRATIVE: CASE EVENT DATE: 201711
